FAERS Safety Report 9140191 (Version 2)
Quarter: 2013Q1

REPORT INFORMATION
  Report Type: Spontaneous
  Country: BR (occurrence: BR)
  Receive Date: 20130305
  Receipt Date: 20130311
  Transmission Date: 20140127
  Serious: Yes (Other)
  Sender: FDA-Public Use
  Company Number: BR-ASTRAZENECA-2013SE13402

PATIENT
  Age: 770 Month
  Sex: Female

DRUGS (2)
  1. CRESTOR [Suspect]
     Route: 048
     Dates: start: 2011, end: 201302
  2. CRESTOR [Suspect]
     Route: 048

REACTIONS (1)
  - Myocardial infarction [Recovered/Resolved]
